FAERS Safety Report 10076035 (Version 3)
Quarter: 2014Q3

REPORT INFORMATION
  Report Type: Spontaneous
  Country: US (occurrence: None)
  Receive Date: 20140410
  Receipt Date: 20140909
  Transmission Date: 20150326
  Serious: Yes (Death, Hospitalization)
  Sender: FDA-Public Use
  Company Number: US-000968

PATIENT
  Sex: Female

DRUGS (2)
  1. SOLUTIONS FOR PARENTERAL NUTRITION [Concomitant]
     Active Substance: AMINO ACIDS\DEXTROSE\ELECTROLYTES NOS
  2. GATTEX [Suspect]
     Active Substance: TEDUGLUTIDE\WATER
     Indication: SHORT-BOWEL SYNDROME
     Route: 058
     Dates: start: 20131213, end: 20140329

REACTIONS (8)
  - Drug dose omission [None]
  - Disorientation [None]
  - Chills [None]
  - Device related infection [None]
  - Pyrexia [None]
  - Cardiac failure congestive [None]
  - Fluid overload [None]
  - Hyperhidrosis [None]
